FAERS Safety Report 4351214-0 (Version None)
Quarter: 2004Q2

REPORT INFORMATION
  Report Type: 
  Country: None (occurrence: None)
  Receive Date: 20040430
  Receipt Date: 20040430
  Transmission Date: 20050107
  Serious: No
  Sender: FDA-Public Use
  Company Number: None

PATIENT
  Sex: Male
  Weight: 49.8957 kg

DRUGS (1)
  1. RECOMBINATE [Suspect]
     Indication: FACTOR VIII DEFICIENCY
     Dosage: 1050 IU 3X WK , IV PUSH
     Route: 042

REACTIONS (3)
  - CHEST PAIN [None]
  - PULSE ABNORMAL [None]
  - RASH MACULAR [None]
